FAERS Safety Report 7892414-2 (Version None)
Quarter: 2011Q4

REPORT INFORMATION
  Report Type: 
  Country: None (occurrence: None)
  Receive Date: 20111102
  Receipt Date: 20111028
  Transmission Date: 20120403
  Serious: Yes (Life-Threatening)
  Sender: FDA-Public Use
  Company Number: 2011SP050827

PATIENT
  Sex: Male

DRUGS (10)
  1. ASPIRIN [Concomitant]
  2. CLOZAPINE [Concomitant]
  3. OMEPRAZOLE [Concomitant]
  4. AMOXICILLIN AND CLAVULANATE POTASSIUM [Concomitant]
  5. LOPERAMIDE HCL [Concomitant]
  6. MIRTAZAPINE [Suspect]
     Indication: DEPRESSED MOOD
     Dosage: 15 MG;QD;PO ; 30 MG;QD;PO
     Route: 048
     Dates: start: 20111003, end: 20111006
  7. MIRTAZAPINE [Suspect]
     Indication: DEPRESSED MOOD
     Dosage: 15 MG;QD;PO ; 30 MG;QD;PO
     Route: 048
     Dates: start: 20111006, end: 20111010
  8. SIMVASTATIN [Concomitant]
  9. DIPYRIDAMOLE [Concomitant]
  10. HYOSCINE HYDROBROMIDE [Concomitant]

REACTIONS (1)
  - NEUROLEPTIC MALIGNANT SYNDROME [None]
